FAERS Safety Report 10944969 (Version 1)
Quarter: 2015Q1

REPORT INFORMATION
  Report Type: Report from Study
  Country: US (occurrence: US)
  Receive Date: 20150323
  Receipt Date: 20150323
  Transmission Date: 20150721
  Serious: Yes (Hospitalization)
  Sender: FDA-Public Use
  Company Number: US-SA-2015SA032683

PATIENT
  Age: 73 Year
  Sex: Male

DRUGS (10)
  1. DORZOLAMIDE/TIMOLOL [Concomitant]
  2. LEUCOVORIN [Suspect]
     Active Substance: LEUCOVORIN
     Indication: OESOPHAGEAL CARCINOMA
     Dosage: INFUSION/14 DAYS
     Route: 041
     Dates: start: 20150107, end: 20150107
  3. LUMIGAN [Concomitant]
     Active Substance: BIMATOPROST
  4. 5-FU [Suspect]
     Active Substance: FLUOROURACIL
     Indication: OESOPHAGEAL CARCINOMA
     Dosage: INFUSION/14 DAYS
     Route: 041
     Dates: start: 20150107, end: 20150107
  5. IMODIUM A-D [Concomitant]
     Active Substance: LOPERAMIDE HYDROCHLORIDE
  6. MORPHINE [Concomitant]
     Active Substance: MORPHINE
  7. PILOCARPINE [Concomitant]
     Active Substance: PILOCARPINE
  8. OXALIPLATIN. [Suspect]
     Active Substance: OXALIPLATIN
     Indication: OESOPHAGEAL CARCINOMA
     Dosage: INFUSION/14 DAYS
     Route: 041
     Dates: start: 20150107, end: 20150107
  9. OMEPRAZOLE. [Concomitant]
     Active Substance: OMEPRAZOLE
  10. BLINDED THERAPY [Suspect]
     Active Substance: INVESTIGATIONAL PRODUCT
     Indication: OESOPHAGEAL CARCINOMA
     Dosage: 12 MG/KG IV BOLUS/ 14 DAYS
     Route: 040
     Dates: start: 20150107, end: 20150107

REACTIONS (1)
  - Pneumonia aspiration [Not Recovered/Not Resolved]

NARRATIVE: CASE EVENT DATE: 20150304
